FAERS Safety Report 6425724-6 (Version None)
Quarter: 2009Q4

REPORT INFORMATION
  Report Type: 
  Country: None (occurrence: None)
  Receive Date: 20091103
  Receipt Date: 20091026
  Transmission Date: 20100525
  Serious: Yes (Hospitalization)
  Sender: FDA-Public Use
  Company Number: PHHY2009GB44034

PATIENT
  Sex: Female

DRUGS (2)
  1. EXJADE [Suspect]
     Indication: SICKLE CELL ANAEMIA
     Dosage: 500 MG/DAY
     Route: 048
     Dates: start: 20090901
  2. EXJADE [Suspect]
     Indication: IRON OVERLOAD

REACTIONS (4)
  - DRUG EXPOSURE DURING PREGNANCY [None]
  - MALAISE [None]
  - PAIN [None]
  - SICKLE CELL ANAEMIA WITH CRISIS [None]
